FAERS Safety Report 16906311 (Version 1)
Quarter: 2019Q4

REPORT INFORMATION
  Report Type: Spontaneous
  Country: DE (occurrence: DE)
  Receive Date: 20191011
  Receipt Date: 20191011
  Transmission Date: 20200122
  Serious: Yes (Death, Other)
  Sender: FDA-Public Use
  Company Number: DE-AMGEN-DEUSP2019162939

PATIENT
  Age: 71 Year
  Sex: Female
  Weight: 81 kg

DRUGS (8)
  1. LAPATINIB [Concomitant]
     Active Substance: LAPATINIB
     Dosage: 1250 MILLIGRAM/SQ. METER
     Dates: start: 20130103, end: 20130112
  2. EXEMESTAN [Concomitant]
     Active Substance: EXEMESTANE
     Dosage: 25 MILLIGRAM/SQ. METER
     Dates: start: 20130108, end: 20130112
  3. LOPERAMID [Concomitant]
     Active Substance: LOPERAMIDE
     Indication: ADVERSE EVENT
     Dosage: UNK
     Dates: start: 20130112, end: 20130115
  4. XGEVA [Suspect]
     Active Substance: DENOSUMAB
     Indication: METASTASES TO BONE
     Dosage: UNK
     Route: 065
  5. DILZEM [Concomitant]
     Active Substance: DILTIAZEM
     Dosage: 90 MILLIGRAM
  6. FRESUBIN [CAFFEINE;CARBOHYDRATES NOS;FATS NOS;FIBRE, DIETARY;MINERALS [Concomitant]
     Indication: ADVERSE EVENT
     Dosage: UNK
  7. L-THYROXIN [LEVOTHYROXINE] [Concomitant]
     Active Substance: LEVOTHYROXINE SODIUM
     Dosage: 100 MICROGRAM
  8. METOCLOPRAMID [METOCLOPRAMIDE] [Concomitant]
     Active Substance: METOCLOPRAMIDE
     Indication: ADVERSE EVENT
     Dosage: UNK

REACTIONS (2)
  - Death [Fatal]
  - Weight decreased [Not Recovered/Not Resolved]

NARRATIVE: CASE EVENT DATE: 20130103
